FAERS Safety Report 6652686-9 (Version None)
Quarter: 2010Q1

REPORT INFORMATION
  Report Type: 
  Country: None (occurrence: None)
  Receive Date: 20100326
  Receipt Date: 20100312
  Transmission Date: 20100710
  Serious: Yes (Hospitalization)
  Sender: FDA-Public Use
  Company Number: CI-RANBAXY-2010RR-32648

PATIENT
  Age: 45 Year
  Sex: Male

DRUGS (11)
  1. STAVUDINE [Suspect]
     Indication: HIV INFECTION
     Dosage: UNK
     Dates: start: 19991101, end: 20010701
  2. DIDANOSINE [Suspect]
     Indication: HIV INFECTION
     Dosage: UNK
     Dates: start: 19991101
  3. DIDANOSINE [Suspect]
     Dosage: UNK
     Dates: start: 20020701
  4. NELFINAVIR [Suspect]
     Indication: HIV INFECTION
     Dosage: UNK
     Dates: start: 19991101
  5. ZIDOVUDINE [Suspect]
     Indication: HIV INFECTION
     Dosage: UNK
     Dates: start: 20010701
  6. ZIDOVUDINE [Suspect]
     Dosage: UNK
     Dates: start: 20020701
  7. ABACAVIR SULFATE [Suspect]
     Indication: HIV INFECTION
     Dosage: UNK
     Dates: start: 20031001
  8. LAMIVUDINE [Suspect]
     Indication: HIV INFECTION
     Dosage: UNK
     Dates: start: 20031001
  9. LAMIVUDINE [Suspect]
     Dosage: UNK
     Dates: start: 20031001
  10. RITONAVIR/SAQUINAVIR [Suspect]
     Indication: HIV INFECTION
     Dosage: UNK
     Dates: start: 20031001, end: 20040701
  11. LOPINAVIR AND RITONAVIR [Suspect]
     Indication: HIV INFECTION
     Dosage: UNK
     Dates: start: 20040701

REACTIONS (1)
  - OSTEONECROSIS [None]
